FAERS Safety Report 25355693 (Version 1)
Quarter: 2025Q2

REPORT INFORMATION
  Report Type: Spontaneous
  Country: HR (occurrence: HR)
  Receive Date: 20250525
  Receipt Date: 20250525
  Transmission Date: 20250716
  Serious: Yes (Other)
  Sender: AUROBINDO
  Company Number: HR-ELI_LILLY_AND_COMPANY-HR202504026535

PATIENT
  Sex: Female

DRUGS (6)
  1. OLANZAPINE [Suspect]
     Active Substance: OLANZAPINE
     Indication: Product used for unknown indication
     Dosage: 140 MILLIGRAM, ONCE A DAY
     Route: 048
     Dates: start: 20250304
  2. FLUOXETINE HYDROCHLORIDE [Suspect]
     Active Substance: FLUOXETINE HYDROCHLORIDE
     Indication: Product used for unknown indication
     Dosage: 420 MILLIGRAM, ONCE A DAY
     Route: 048
     Dates: start: 20250304
  3. DULOXETINE HYDROCHLORIDE [Suspect]
     Active Substance: DULOXETINE HYDROCHLORIDE
     Indication: Product used for unknown indication
     Dosage: 840 MILLIGRAM, ONCE A DAY
     Route: 048
     Dates: start: 20250304
  4. BISOPROLOL [Suspect]
     Active Substance: BISOPROLOL
     Indication: Product used for unknown indication
     Dosage: 125 MILLIGRAM, ONCE A DAY
     Route: 048
     Dates: start: 20250304
  5. SULPIRIDE [Suspect]
     Active Substance: SULPIRIDE
     Indication: Product used for unknown indication
     Dosage: 1450 MILLIGRAM, ONCE A DAY
     Route: 048
     Dates: start: 20250304
  6. MIRTAZAPINE [Suspect]
     Active Substance: MIRTAZAPINE
     Indication: Product used for unknown indication
     Dosage: 900 MILLIGRAM, ONCE A DAY
     Route: 048
     Dates: start: 20250304

REACTIONS (3)
  - Electrocardiogram QRS complex shortened [Unknown]
  - Suicide attempt [Unknown]
  - Intentional overdose [Unknown]

NARRATIVE: CASE EVENT DATE: 20250304
